FAERS Safety Report 18334705 (Version 1)
Quarter: 2020Q4

REPORT INFORMATION
  Report Type: Spontaneous
  Country: CH (occurrence: CH)
  Receive Date: 20201001
  Receipt Date: 20201001
  Transmission Date: 20210113
  Serious: Yes (Hospitalization)
  Sender: FDA-Public Use
  Company Number: CH-PFIZER INC-2020378399

PATIENT
  Age: 58 Year
  Sex: Male

DRUGS (6)
  1. EZETROL [Concomitant]
     Active Substance: EZETIMIBE
     Dosage: UNK
  2. XARELTO [Interacting]
     Active Substance: RIVAROXABAN
     Dosage: 2.5 MG, ALTERNATE DAY
     Route: 048
     Dates: start: 2020, end: 20200901
  3. TORASEMID SANDOZ ECO [Concomitant]
     Active Substance: TORSEMIDE
     Dosage: UNK
  4. ZOLOFT [Suspect]
     Active Substance: SERTRALINE HYDROCHLORIDE
     Dosage: 50 MG, 1X/DAY
     Route: 048
  5. ATORVA PFIZER [Concomitant]
     Active Substance: ATORVASTATIN
     Dosage: UNK
  6. BRILIQUE [Interacting]
     Active Substance: TICAGRELOR
     Dosage: 90 MG (1 DF) ALTERNATE DAY

REACTIONS (7)
  - Drug interaction [Unknown]
  - Bronchial wall thickening [Unknown]
  - Haemoptysis [Recovered/Resolved]
  - Off label use [Recovered/Resolved]
  - Pulmonary artery wall hypertrophy [Unknown]
  - Disease recurrence [Unknown]
  - Pulmonary haemorrhage [Unknown]

NARRATIVE: CASE EVENT DATE: 20200901
